FAERS Safety Report 5933760-9 (Version None)
Quarter: 2008Q4

REPORT INFORMATION
  Report Type: 
  Country: None (occurrence: None)
  Receive Date: 20081024
  Receipt Date: 20080907
  Transmission Date: 20090506
  Serious: Yes (Hospitalization)
  Sender: FDA-Public Use
  Company Number: CL000432008

PATIENT
  Age: 76 Year
  Sex: Female

DRUGS (5)
  1. CIPROFLOXACIN [Suspect]
     Indication: URINARY TRACT INFECTION
     Dosage: 500MCG; ORAL
     Route: 048
     Dates: start: 20080319, end: 20080329
  2. FLOXACILLIN SODIUM [Concomitant]
  3. GLUCOSAMINE [Concomitant]
  4. STRONTIUM [Concomitant]
  5. TRIMETHOPRIM [Concomitant]

REACTIONS (1)
  - TENDONITIS [None]
